FAERS Safety Report 11843099 (Version 3)
Quarter: 2016Q1

REPORT INFORMATION
  Report Type: Report from Study
  Country: NL (occurrence: NL)
  Receive Date: 20151216
  Receipt Date: 20160209
  Transmission Date: 20160526
  Serious: Yes (Hospitalization)
  Sender: FDA-Public Use
  Company Number: NL-BAXALTA-2015BLT003210

PATIENT
  Sex: Male

DRUGS (4)
  1. KIOVIG 100 MG/ML [Suspect]
     Active Substance: HUMAN IMMUNOGLOBULIN G
     Dosage: UNK UNK, EVERY 3 WK
     Route: 042
     Dates: start: 20150512
  2. KIOVIG 100 MG/ML [Suspect]
     Active Substance: HUMAN IMMUNOGLOBULIN G
     Dosage: UNK UNK, EVERY 3 WK
     Route: 042
     Dates: start: 20151117
  3. KIOVIG 100 MG/ML [Suspect]
     Active Substance: HUMAN IMMUNOGLOBULIN G
     Indication: HYPOGAMMAGLOBULINAEMIA
     Dosage: UNK UNK, EVERY 3 WK
     Route: 042
     Dates: start: 20150512
  4. KIOVIG 100 MG/ML [Suspect]
     Active Substance: HUMAN IMMUNOGLOBULIN G
     Dosage: UNK UNK, EVERY 3 WK
     Route: 042
     Dates: start: 20151117

REACTIONS (1)
  - Blood count abnormal [Unknown]
